FAERS Safety Report 7980704-4 (Version None)
Quarter: 2011Q4

REPORT INFORMATION
  Report Type: 
  Country: None (occurrence: None)
  Receive Date: 20111214
  Receipt Date: 20111201
  Transmission Date: 20120403
  Serious: Yes (Congenital Anomaly)
  Sender: FDA-Public Use
  Company Number: US-AMGEN-USASP2011064119

PATIENT

DRUGS (1)
  1. ENBREL [Suspect]
     Dosage: 50 MG, 2 TIMES/WK
     Route: 058
     Dates: start: 20080128, end: 20110727

REACTIONS (4)
  - CONGENITAL ANOMALY [None]
  - CONGENITAL DIAPHRAGMATIC HERNIA [None]
  - MULTIPLE CONGENITAL ABNORMALITIES [None]
  - SINGLE UMBILICAL ARTERY [None]
